FAERS Safety Report 9584000 (Version 1)
Quarter: 2013Q4

REPORT INFORMATION
  Report Type: Spontaneous
  Country: US (occurrence: US)
  Receive Date: 20131002
  Receipt Date: 20131002
  Transmission Date: 20140711
  Serious: No
  Sender: FDA-Public Use
  Company Number: US-AMGEN-USASP2013051353

PATIENT
  Age: 58 Year
  Sex: Female

DRUGS (18)
  1. ENBREL [Suspect]
     Indication: PRODUCT USED FOR UNKNOWN INDICATION
     Dosage: 50 MG, QWK
     Route: 058
     Dates: start: 201212, end: 20130711
  2. NIACIN [Concomitant]
     Dosage: 125 MG, UNK
  3. CALCIUM D                          /00944201/ [Concomitant]
     Dosage: UNK
  4. D3 [Concomitant]
     Dosage: 1000 UNIT, UNK
  5. FISH OIL [Concomitant]
     Dosage: UNK
  6. VITAMIN C                          /00008001/ [Concomitant]
     Dosage: 500 MG, UNK
  7. ASPIRIN CHILDREN [Concomitant]
     Dosage: 81 MG, UNK
  8. LAXATIVE [Concomitant]
     Dosage: 5 MG, UNK
  9. METROCREAM [Concomitant]
     Dosage: UNK
  10. LEXAPRO [Concomitant]
     Dosage: 5 MG, UNK
  11. SIMVASTATIN [Concomitant]
     Dosage: 80 MG, UNK
  12. LYRICA [Concomitant]
     Dosage: 100 MG, UNK
  13. PREDNISONE [Concomitant]
     Dosage: 2.5 MG, UNK
  14. HYDROCHLOROTH [Concomitant]
     Dosage: 12.5 MG, UNK
  15. TRAZODONE [Concomitant]
     Dosage: 50 MG, UNK
  16. METHOTREXATE [Concomitant]
     Dosage: 2.5 MG, UNK
  17. FOLIC ACID [Concomitant]
     Dosage: 20 MG, UNK
  18. PRILOSEC                           /00661201/ [Concomitant]
     Dosage: 10 MG, UNK

REACTIONS (1)
  - Drug ineffective [Unknown]
